FAERS Safety Report 7055512-1 (Version None)
Quarter: 2010Q4

REPORT INFORMATION
  Report Type: 
  Country: None (occurrence: None)
  Receive Date: 20101019
  Receipt Date: 20101019
  Transmission Date: 20110411
  Serious: Yes (Hospitalization)
  Sender: FDA-Public Use
  Company Number: None

PATIENT
  Sex: Female
  Weight: 71.2147 kg

DRUGS (2)
  1. CRESTOR [Suspect]
     Indication: CORONARY ARTERY DISEASE
     Dates: start: 20090702, end: 20101007
  2. CRESTOR [Suspect]
     Indication: HYPERLIPIDAEMIA
     Dates: start: 20090702, end: 20101007

REACTIONS (1)
  - RHABDOMYOLYSIS [None]
